FAERS Safety Report 15007755 (Version 1)
Quarter: 2018Q2

REPORT INFORMATION
  Report Type: Spontaneous
  Country: US (occurrence: US)
  Receive Date: 20180613
  Receipt Date: 20180613
  Transmission Date: 20180711
  Serious: Yes (Hospitalization, Other)
  Sender: FDA-Public Use
  Company Number: US-BRISTOL-MYERS SQUIBB COMPANY-BMS-2018-051218

PATIENT
  Age: 58 Year
  Sex: Female

DRUGS (2)
  1. COUMADIN [Suspect]
     Active Substance: WARFARIN SODIUM
     Indication: PULMONARY THROMBOSIS
     Dosage: UNK
     Route: 048
     Dates: start: 2005
  2. COUMADIN [Suspect]
     Active Substance: WARFARIN SODIUM
     Indication: INTRACARDIAC THROMBUS
     Route: 065

REACTIONS (3)
  - Infection [Not Recovered/Not Resolved]
  - Haemorrhage urinary tract [Unknown]
  - Epistaxis [Not Recovered/Not Resolved]

NARRATIVE: CASE EVENT DATE: 201803
